FAERS Safety Report 23991454 (Version 1)
Quarter: 2024Q2

REPORT INFORMATION
  Report Type: Spontaneous
  Country: US (occurrence: US)
  Receive Date: 20240619
  Receipt Date: 20240619
  Transmission Date: 20240716
  Serious: Yes (Hospitalization, Other)
  Sender: FDA-Public Use
  Company Number: US-BRISTOL-MYERS SQUIBB COMPANY-2024-091567

PATIENT
  Age: 76 Year
  Sex: Female
  Weight: 125.3 kg

DRUGS (1)
  1. IDHIFA [Suspect]
     Active Substance: ENASIDENIB MESYLATE
     Indication: Acute myeloid leukaemia
     Dates: start: 20240521

REACTIONS (6)
  - Atrial fibrillation [Unknown]
  - Asthenia [Unknown]
  - Peripheral swelling [Unknown]
  - Mobility decreased [Recovering/Resolving]
  - Incoherent [Recovering/Resolving]
  - Circulatory collapse [Recovering/Resolving]

NARRATIVE: CASE EVENT DATE: 20240501
